FAERS Safety Report 14064915 (Version 1)
Quarter: 2017Q4

REPORT INFORMATION
  Report Type: Spontaneous
  Country: US (occurrence: US)
  Receive Date: 20171009
  Receipt Date: 20171009
  Transmission Date: 20180321
  Serious: Yes (Death, Hospitalization)
  Sender: FDA-Public Use
  Company Number: US-CELGENEUS-USA-2016121748

PATIENT
  Sex: Male

DRUGS (1)
  1. VIDAZA [Suspect]
     Active Substance: AZACITIDINE
     Indication: ACUTE MYELOID LEUKAEMIA
     Route: 065

REACTIONS (9)
  - Transaminases increased [Unknown]
  - Herpes simplex [Unknown]
  - Pneumonia fungal [Unknown]
  - Cellulitis [Unknown]
  - Enterococcal infection [Unknown]
  - Stenotrophomonas infection [Unknown]
  - Febrile neutropenia [Unknown]
  - Metapneumovirus infection [Fatal]
  - Respiratory syncytial virus infection [Unknown]
